FAERS Safety Report 8103834-5 (Version None)
Quarter: 2012Q1

REPORT INFORMATION
  Report Type: 
  Country: None (occurrence: None)
  Receive Date: 20120201
  Receipt Date: 20120122
  Transmission Date: 20120608
  Serious: Yes (Other)
  Sender: FDA-Public Use
  Company Number: IL-NOVOPROD-343445

PATIENT
  Age: 56 Year
  Sex: Female
  Weight: 88 kg

DRUGS (7)
  1. VICTOZA [Suspect]
     Indication: TYPE 2 DIABETES MELLITUS
     Dosage: 1.2 MG, QD
     Route: 065
     Dates: start: 20110919
  2. RECITAL                            /00261401/ [Concomitant]
  3. FENTA [Concomitant]
  4. ETOPAN [Concomitant]
  5. NORMITEN [Concomitant]
  6. PERCOCET [Concomitant]
  7. CYMBALTA [Concomitant]

REACTIONS (3)
  - NASOPHARYNGITIS [None]
  - HEPATIC STEATOSIS [None]
  - COLD SWEAT [None]
